FAERS Safety Report 9944037 (Version 2)
Quarter: 2014Q1

REPORT INFORMATION
  Report Type: Spontaneous
  Country: US (occurrence: US)
  Receive Date: 20140303
  Receipt Date: 20140303
  Transmission Date: 20141002
  Serious: No
  Sender: FDA-Public Use
  Company Number: US-GILEAD-2012-0062952

PATIENT
  Sex: Female

DRUGS (2)
  1. RANEXA [Suspect]
     Indication: ANGINA PECTORIS
     Dosage: UNK
     Route: 048
  2. RANEXA [Suspect]
     Dosage: 250 MG, BID
     Route: 048

REACTIONS (2)
  - Muscle spasms [Unknown]
  - Chest pain [Unknown]
